FAERS Safety Report 15302875 (Version 5)
Quarter: 2018Q4

REPORT INFORMATION
  Report Type: Report from Study
  Country: US (occurrence: US)
  Receive Date: 20180821
  Receipt Date: 20181030
  Transmission Date: 20190204
  Serious: Yes (Hospitalization, Other)
  Sender: FDA-Public Use
  Company Number: US-ACTELION-A-NJ2018-175916

PATIENT
  Age: 65 Year
  Sex: Female
  Weight: 68.48 kg

DRUGS (4)
  1. VELETRI [Suspect]
     Active Substance: EPOPROSTENOL
     Dosage: 9.8 NG/KG, PER MIN
     Route: 042
  2. VELETRI [Suspect]
     Active Substance: EPOPROSTENOL
     Dosage: UNK
     Route: 042
  3. VELETRI [Suspect]
     Active Substance: EPOPROSTENOL
     Dosage: 11.35 NG/KG, PER MIN
     Route: 042
  4. VELETRI [Suspect]
     Active Substance: EPOPROSTENOL
     Indication: PULMONARY ARTERIAL HYPERTENSION
     Dosage: 7.97 NG/KG, PER MIN
     Route: 042

REACTIONS (17)
  - Hospitalisation [Unknown]
  - Pulmonary arterial hypertension [Unknown]
  - Vomiting [Unknown]
  - Headache [Unknown]
  - Nausea [Unknown]
  - Lung transplant [Unknown]
  - Application site pruritus [Unknown]
  - Catheter site inflammation [Unknown]
  - Catheter site pruritus [Unknown]
  - Diarrhoea [Unknown]
  - Erythema [Unknown]
  - Pain in jaw [Unknown]
  - Arthralgia [Unknown]
  - Flushing [Unknown]
  - Hyperhidrosis [Unknown]
  - Rash pruritic [Unknown]
  - Pain [Unknown]
